FAERS Safety Report 9193774 (Version 2)
Quarter: 2013Q2

REPORT INFORMATION
  Report Type: Spontaneous
  Country: JP (occurrence: JP)
  Receive Date: 20130327
  Receipt Date: 20130401
  Transmission Date: 20140414
  Serious: Yes (Other)
  Sender: FDA-Public Use
  Company Number: JP-PFIZER INC-2013093716

PATIENT
  Age: 77 Year
  Sex: Female

DRUGS (2)
  1. METHYLPREDNISOLONE [Suspect]
     Indication: DERMATOMYOSITIS
     Dosage: 500 MG DAILY FOR 3 DAYS
  2. PREDONINE [Suspect]
     Indication: DERMATOMYOSITIS
     Dosage: 50 MG/DAY

REACTIONS (3)
  - Pneumatosis intestinalis [Recovering/Resolving]
  - Pneumomediastinum [Recovering/Resolving]
  - Diabetes mellitus [Recovering/Resolving]
